FAERS Safety Report 12974059 (Version 6)
Quarter: 2022Q4

REPORT INFORMATION
  Report Type: Spontaneous
  Country: FR (occurrence: FR)
  Receive Date: 20161124
  Receipt Date: 20221013
  Transmission Date: 20230113
  Serious: Yes (Hospitalization, Other)
  Sender: FDA-Public Use
  Company Number: FR-ROCHE-1858054

PATIENT
  Age: 71 Year
  Sex: Male
  Weight: 80 kg

DRUGS (2)
  1. OBINUTUZUMAB [Suspect]
     Active Substance: OBINUTUZUMAB
     Indication: Chronic lymphocytic leukaemia
     Route: 042
     Dates: start: 20161117
  2. PERFALGAN [Concomitant]
     Active Substance: ACETAMINOPHEN

REACTIONS (4)
  - Infusion related reaction [Recovering/Resolving]
  - Tumour lysis syndrome [Recovering/Resolving]
  - Hepatic cytolysis [Recovered/Resolved]
  - Pyrexia [Recovered/Resolved]

NARRATIVE: CASE EVENT DATE: 20161117
